FAERS Safety Report 14610939 (Version 1)
Quarter: 2018Q1

REPORT INFORMATION
  Report Type: Spontaneous
  Country: IT (occurrence: IT)
  Receive Date: 20180308
  Receipt Date: 20180308
  Transmission Date: 20180509
  Serious: Yes (Other)
  Sender: FDA-Public Use
  Company Number: IT-CIPLA LTD.-2018IT10392

PATIENT

DRUGS (6)
  1. OXALIPLATIN. [Suspect]
     Active Substance: OXALIPLATIN
     Indication: METASTASES TO PERITONEUM
     Dosage: UNK
     Route: 065
  2. FOLINIC ACID [Suspect]
     Active Substance: LEUCOVORIN
     Indication: METASTASES TO PERITONEUM
     Dosage: UNK
  3. FLUOROURACIL. [Suspect]
     Active Substance: FLUOROURACIL
     Indication: METASTASES TO PERITONEUM
     Dosage: UNK
     Route: 065
  4. CAPECITABINE. [Suspect]
     Active Substance: CAPECITABINE
     Indication: SMALL INTESTINE CARCINOMA
     Dosage: UNK
     Route: 065
  5. BEVACIZUMAB. [Suspect]
     Active Substance: BEVACIZUMAB
     Indication: METASTASES TO PERITONEUM
     Dosage: UNK
     Route: 065
  6. PANITUMUMAB [Concomitant]
     Active Substance: PANITUMUMAB
     Indication: MALIGNANT NEOPLASM PROGRESSION
     Dosage: UNK
     Route: 065

REACTIONS (5)
  - Carcinoid tumour of the small bowel [Unknown]
  - Malignant neoplasm progression [Unknown]
  - Hypertension [Unknown]
  - Nausea [Unknown]
  - Gastrointestinal toxicity [Unknown]

NARRATIVE: CASE EVENT DATE: 201208
